FAERS Safety Report 7985548-5 (Version None)
Quarter: 2011Q4

REPORT INFORMATION
  Report Type: 
  Country: None (occurrence: None)
  Receive Date: 20111216
  Receipt Date: 20111213
  Transmission Date: 20120403
  Serious: Yes (Hospitalization)
  Sender: FDA-Public Use
  Company Number: IT-BRISTOL-MYERS SQUIBB COMPANY-16245441

PATIENT
  Age: 72 Year
  Sex: Female

DRUGS (6)
  1. IRON [Suspect]
     Indication: IRON DEFICIENCY
     Dates: start: 20080101, end: 20111105
  2. LASIX [Concomitant]
     Indication: CARDIAC FAILURE
     Dates: start: 20080101, end: 20111105
  3. LASITONE [Concomitant]
     Indication: OEDEMA
     Dates: start: 20080101, end: 20111105
  4. LANOXIN [Concomitant]
     Indication: ATRIAL FIBRILLATION
     Dosage: 0.0352 UNITS NOS
     Dates: start: 20080101, end: 20111105
  5. COUMADIN [Suspect]
     Dosage: COUMADIN 5MG ORAL TABS
     Route: 048
     Dates: start: 20080101, end: 20111105
  6. LOSARTAN POTASSIUM [Suspect]
     Indication: CARDIAC FAILURE
     Dosage: 12.5MG
     Route: 048
     Dates: start: 20080101, end: 20111105

REACTIONS (2)
  - MELAENA [None]
  - ANAEMIA [None]
